FAERS Safety Report 18733935 (Version 1)
Quarter: 2021Q1

REPORT INFORMATION
  Report Type: Spontaneous
  Country: US (occurrence: US)
  Receive Date: 20210112
  Receipt Date: 20210112
  Transmission Date: 20210419
  Serious: Yes (Hospitalization)
  Sender: FDA-Public Use
  Company Number: None

PATIENT
  Age: 77 Year
  Sex: Female

DRUGS (1)
  1. CAPECITABINE TAB 500MG [Suspect]
     Active Substance: CAPECITABINE
     Route: 046
     Dates: start: 20201002

REACTIONS (3)
  - Unevaluable event [None]
  - Sepsis [None]
  - Diarrhoea [None]

NARRATIVE: CASE EVENT DATE: 20201214
